FAERS Safety Report 6890029-6 (Version None)
Quarter: 2010Q3

REPORT INFORMATION
  Report Type: 
  Country: None (occurrence: None)
  Receive Date: 20100730
  Receipt Date: 20080731
  Transmission Date: 20110219
  Serious: No
  Sender: FDA-Public Use
  Company Number: US-PFIZER INC-2008058781

PATIENT
  Age: 64 Year
  Sex: Female

DRUGS (5)
  1. LIPITOR [Suspect]
  2. ARTHROTEC [Suspect]
  3. DIOVANE [Concomitant]
  4. EVISTA [Concomitant]
  5. ZYRTEC [Concomitant]

REACTIONS (1)
  - CHEST DISCOMFORT [None]
